FAERS Safety Report 13598816 (Version 2)
Quarter: 2017Q3

REPORT INFORMATION
  Report Type: Spontaneous
  Country: TW (occurrence: TW)
  Receive Date: 20170531
  Receipt Date: 20170822
  Transmission Date: 20171127
  Serious: Yes (Hospitalization)
  Sender: FDA-Public Use
  Company Number: TW-PFIZER INC-2017232577

PATIENT
  Age: 68 Year
  Sex: Male

DRUGS (1)
  1. SUTENT [Suspect]
     Active Substance: SUNITINIB MALATE
     Indication: RENAL CELL CARCINOMA
     Dosage: 37.5 MG, 1X/DAY (QD)
     Route: 048
     Dates: start: 20151208

REACTIONS (3)
  - Anaemia [Recovering/Resolving]
  - Lung disorder [Unknown]
  - Inflammation [Unknown]

NARRATIVE: CASE EVENT DATE: 201705
